FAERS Safety Report 5520921-6 (Version None)
Quarter: 2007Q4

REPORT INFORMATION
  Report Type: 
  Country: None (occurrence: None)
  Receive Date: 20071116
  Receipt Date: 20071116
  Transmission Date: 20080405
  Serious: No
  Sender: FDA-Public Use
  Company Number: None

PATIENT
  Age: 5 Year

DRUGS (1)
  1. AMOXIL [Suspect]
     Indication: PHARYNGITIS STREPTOCOCCAL
     Dosage: 250 MG PO
     Route: 048

REACTIONS (1)
  - RASH GENERALISED [None]
